FAERS Safety Report 16149998 (Version 1)
Quarter: 2019Q2

REPORT INFORMATION
  Report Type: Spontaneous
  Country: US (occurrence: US)
  Receive Date: 20190402
  Receipt Date: 20190402
  Transmission Date: 20190711
  Serious: Yes (Other)
  Sender: FDA-Public Use
  Company Number: None

PATIENT
  Age: 41 Year
  Sex: Female
  Weight: 59.85 kg

DRUGS (1)
  1. BC (ASPIRIN\CAFFEINE) [Suspect]
     Active Substance: ASPIRIN\CAFFEINE
     Indication: HEADACHE
     Dosage: ?          QUANTITY:1 POUCH;?
     Route: 048
     Dates: start: 20190402, end: 20190402

REACTIONS (3)
  - Diarrhoea [None]
  - Urticaria [None]
  - Abdominal pain upper [None]

NARRATIVE: CASE EVENT DATE: 20190402
